FAERS Safety Report 5493979-0 (Version None)
Quarter: 2007Q4

REPORT INFORMATION
  Report Type: 
  Country: None (occurrence: None)
  Receive Date: 20071023
  Receipt Date: 20071013
  Transmission Date: 20080405
  Serious: Yes (Other)
  Sender: FDA-Public Use
  Company Number: US-PFIZER INC-2007045767

PATIENT
  Sex: Female
  Weight: 90.3 kg

DRUGS (10)
  1. LIPITOR [Suspect]
     Indication: BLOOD CHOLESTEROL INCREASED
  2. LIPITOR [Suspect]
     Indication: HYPERLIPIDAEMIA
  3. CELEBREX [Suspect]
     Indication: ARTHRITIS
  4. CELEBREX [Suspect]
     Indication: OSTEOARTHRITIS
  5. PAROXETINE [Concomitant]
     Indication: DEPRESSION
  6. ADDERALL 10 [Concomitant]
     Indication: DEPRESSION
  7. LISINOPRIL [Concomitant]
  8. CARTIA XT [Concomitant]
     Dosage: DAILY DOSE:180MG
  9. PRILOSEC [Concomitant]
  10. ALPRAZOLAM [Concomitant]

REACTIONS (9)
  - ARTHRITIS [None]
  - CONTUSION [None]
  - DRUG INEFFECTIVE [None]
  - ECCHYMOSIS [None]
  - FALL [None]
  - PETECHIAE [None]
  - PROTHROMBIN TIME PROLONGED [None]
  - PURPURA [None]
  - SKIN ATROPHY [None]
